FAERS Safety Report 13602671 (Version 8)
Quarter: 2021Q1

REPORT INFORMATION
  Report Type: Spontaneous
  Country: US (occurrence: US)
  Receive Date: 20170601
  Receipt Date: 20210121
  Transmission Date: 20210419
  Serious: Yes (Other)
  Sender: FDA-Public Use
  Company Number: US-PFIZER INC-2017237069

PATIENT
  Age: 73 Year
  Sex: Female

DRUGS (4)
  1. XALATAN [Suspect]
     Active Substance: LATANOPROST
     Dosage: 125 UG, UNK
  2. XALATAN [Suspect]
     Active Substance: LATANOPROST
     Indication: GLAUCOMA
     Dosage: UNK
     Dates: start: 2006
  3. XALATAN [Suspect]
     Active Substance: LATANOPROST
     Dosage: 1 DROP EACH EYE NIGHTLY
  4. XALATAN [Suspect]
     Active Substance: LATANOPROST
     Indication: OCULAR HYPERTENSION
     Dosage: 2 GTT BOTH EYES NIGHTLY

REACTIONS (5)
  - Product complaint [Unknown]
  - Visual impairment [Not Recovered/Not Resolved]
  - Incorrect dose administered [Unknown]
  - Product prescribing error [Unknown]
  - Product dose omission issue [Unknown]
